FAERS Safety Report 13665550 (Version 1)
Quarter: 2017Q2

REPORT INFORMATION
  Report Type: Spontaneous
  Country: DE (occurrence: DE)
  Receive Date: 20170619
  Receipt Date: 20170619
  Transmission Date: 20170830
  Serious: Yes (Other)
  Sender: FDA-Public Use
  Company Number: DE-BAYER-2017-112853

PATIENT
  Age: 33 Year
  Sex: Female
  Weight: 70 kg

DRUGS (1)
  1. MIRENA [Suspect]
     Active Substance: LEVONORGESTREL
     Indication: CONTRACEPTION
     Dosage: UNK
     Route: 015
     Dates: start: 20141022

REACTIONS (22)
  - Sleep disorder [Unknown]
  - Nausea [Unknown]
  - Dizziness [Unknown]
  - Depression [Unknown]
  - Uterine cyst [Unknown]
  - Weight decreased [Unknown]
  - Uterine inflammation [Unknown]
  - Anxiety [Unknown]
  - Decreased appetite [Unknown]
  - Palpitations [Unknown]
  - Abdominal discomfort [Unknown]
  - Memory impairment [Unknown]
  - Acne [Unknown]
  - Fatigue [Unknown]
  - Amenorrhoea [Unknown]
  - Stomatitis [Unknown]
  - Suicidal ideation [Unknown]
  - Arthralgia [Unknown]
  - Abdominal pain [Unknown]
  - Back pain [Unknown]
  - Cystitis noninfective [Unknown]
  - Pharyngitis [Unknown]

NARRATIVE: CASE EVENT DATE: 2016
